FAERS Safety Report 15950853 (Version 1)
Quarter: 2019Q1

REPORT INFORMATION
  Report Type: Spontaneous
  Country: US (occurrence: US)
  Receive Date: 20190212
  Receipt Date: 20190212
  Transmission Date: 20190417
  Serious: No
  Sender: FDA-Public Use
  Company Number: US-GLAXOSMITHKLINE-US2019GSK022727

PATIENT
  Sex: Male

DRUGS (1)
  1. BUPROPION HYDROCHLORIDE XL [Suspect]
     Active Substance: BUPROPION HYDROCHLORIDE
     Indication: MAJOR DEPRESSION
     Dosage: 300 MG, QD

REACTIONS (3)
  - Drug ineffective [Unknown]
  - Palpitations [Unknown]
  - Product storage error [Unknown]

NARRATIVE: CASE EVENT DATE: 201901
